FAERS Safety Report 21184488 (Version 1)
Quarter: 2022Q3

REPORT INFORMATION
  Report Type: Report from Study
  Country: US (occurrence: US)
  Receive Date: 20220808
  Receipt Date: 20220808
  Transmission Date: 20221027
  Serious: Yes (Hospitalization)
  Sender: FDA-Public Use
  Company Number: US-TEVA-2022-US-2063600

PATIENT
  Age: 37 Year
  Sex: Male
  Weight: 81.6 kg

DRUGS (8)
  1. FLUOROURACIL [Suspect]
     Active Substance: FLUOROURACIL
     Indication: Colorectal cancer metastatic
     Dosage: DOSE FOR IV INFUSION 3915 MG, EVERY TWO WEEKS
     Route: 042
     Dates: start: 20220201
  2. LEUCOVORIN CALCIUM [Suspect]
     Active Substance: LEUCOVORIN CALCIUM
     Indication: Colorectal cancer metastatic
     Dosage: EVERY TWO WEEKS
     Route: 042
     Dates: start: 20220201
  3. OXALIPLATIN [Suspect]
     Active Substance: OXALIPLATIN
     Indication: Colorectal cancer metastatic
     Route: 042
     Dates: start: 20220201
  4. CETUXIMAB [Suspect]
     Active Substance: CETUXIMAB
     Indication: Colorectal cancer metastatic
     Dosage: 1030 MG, EVERY TWO WEEKS
     Route: 042
     Dates: start: 20220201
  5. ENCORAFENIB [Suspect]
     Active Substance: ENCORAFENIB
     Indication: Colorectal cancer metastatic
     Dosage: 300 MILLIGRAM DAILY;
     Route: 048
  6. BUSPIRONE [Concomitant]
     Active Substance: BUSPIRONE HYDROCHLORIDE
     Indication: Anxiety
     Route: 048
     Dates: start: 202111
  7. OXYCODONE [Concomitant]
     Active Substance: OXYCODONE
     Indication: Proctalgia
     Route: 048
     Dates: start: 20220126
  8. LORAZEPAM [Concomitant]
     Active Substance: LORAZEPAM
     Indication: Anxiety
     Route: 048
     Dates: start: 20220126

REACTIONS (4)
  - Sepsis [Recovering/Resolving]
  - Fatigue [Unknown]
  - Hyperglycaemia [Unknown]
  - Peripheral sensory neuropathy [Unknown]

NARRATIVE: CASE EVENT DATE: 20220315
